FAERS Safety Report 4547413-5 (Version None)
Quarter: 2005Q1

REPORT INFORMATION
  Report Type: 
  Country: None (occurrence: None)
  Receive Date: 20050107
  Receipt Date: 20041228
  Transmission Date: 20050727
  Serious: Yes (Other)
  Sender: FDA-Public Use
  Company Number: JP-ROCHE-391378

PATIENT

DRUGS (2)
  1. ROCEPHIN [Suspect]
     Indication: KLEBSIELLA BACTERAEMIA
     Route: 042
     Dates: start: 20041215, end: 20041215
  2. ROCEPHIN [Suspect]
     Route: 042
     Dates: start: 20041215, end: 20041227

REACTIONS (5)
  - C-REACTIVE PROTEIN INCREASED [None]
  - NEUTROPHIL PERCENTAGE DECREASED [None]
  - PANCYTOPENIA [None]
  - PYREXIA [None]
  - WHITE BLOOD CELL COUNT DECREASED [None]
